FAERS Safety Report 4914246-7 (Version None)
Quarter: 2006Q1

REPORT INFORMATION
  Report Type: 
  Country: None (occurrence: None)
  Receive Date: 20060213
  Receipt Date: 20060127
  Transmission Date: 20060701
  Serious: Yes (Hospitalization, Other)
  Sender: FDA-Public Use
  Company Number: DSA_27701_2006

PATIENT
  Age: 66 Year
  Sex: Male

DRUGS (1)
  1. RENITEC [Suspect]
     Indication: HYPERTENSION
     Dosage: DF PO
     Route: 048

REACTIONS (4)
  - HYPERTENSIVE CRISIS [None]
  - HYPOGLYCAEMIA [None]
  - MUSCLE SPASMS [None]
  - SPEECH DISORDER [None]
